FAERS Safety Report 7966449-5 (Version None)
Quarter: 2011Q4

REPORT INFORMATION
  Report Type: 
  Country: None (occurrence: None)
  Receive Date: 20111208
  Receipt Date: 20111130
  Transmission Date: 20120403
  Serious: Yes (Hospitalization)
  Sender: FDA-Public Use
  Company Number: IL-ROCHE-744758

PATIENT
  Sex: Female
  Weight: 78 kg

DRUGS (16)
  1. ADALIMUMAB [Concomitant]
  2. ASCORBIC ACID [Concomitant]
  3. DOXAZOSIN MESYLATE [Concomitant]
  4. NORMOPRESAN [Concomitant]
     Dosage: TDD: 0.075
  5. SIMVASTATIN [Concomitant]
  6. TRIBEMIN [Concomitant]
  7. CALCIUM CARBONATE [Concomitant]
  8. ALPHA D3 [Concomitant]
     Dosage: REPORTED AS: ALFA D3
  9. LEVOTHYROXINE SODIUM [Concomitant]
  10. VERAPAMIL [Concomitant]
     Dosage: REPORTED AS: IKAPRESS, TDD: 240
  11. ENALAPRIL MALEATE [Concomitant]
     Dosage: REPORTED AS: CONVERTIN, TDD: 20 MG
  12. FUROSEMIDE [Concomitant]
     Dosage: REPORTED AS: FUSID, TDD: 40
  13. FOLIC ACID [Concomitant]
  14. MIRCERA [Suspect]
     Indication: NEPHROGENIC ANAEMIA
     Dosage: DOSE 80 LAST DOSE PRIOR TO SAE:19 APRIL 2010
     Route: 042
  15. LEVOTHYROXINE SODIUM [Concomitant]
  16. TAMOXIFEN [Concomitant]
     Dosage: REPORTED AS: TAMOXIPEN
     Dates: start: 20090315, end: 20100912

REACTIONS (2)
  - BREAST CANCER [None]
  - DIPLOPIA [None]
